FAERS Safety Report 18411747 (Version 2)
Quarter: 2020Q4

REPORT INFORMATION
  Report Type: Spontaneous
  Country: IN (occurrence: IN)
  Receive Date: 20201021
  Receipt Date: 20201105
  Transmission Date: 20210114
  Serious: Yes (Hospitalization, Other)
  Sender: FDA-Public Use
  Company Number: IN-DENTSPLY-2020SCDP000337

PATIENT
  Age: 63 Year
  Sex: Male

DRUGS (2)
  1. LIDOCAINE HYDROCHLORIDE AND EPINEPHRINE BITARTRATE [Suspect]
     Active Substance: EPINEPHRINE BITARTRATE\LIDOCAINE HYDROCHLORIDE
     Indication: ANAESTHESIA
     Dosage: 4 MILLILITER, LIGNOCAINE 2% WITH ADRENALINE 1 IN 200,000
     Route: 061
  2. EPINEPHRINE. [Concomitant]
     Active Substance: EPINEPHRINE
     Indication: PRODUCT USED FOR UNKNOWN INDICATION
     Dosage: LIGNOCAINE 2% WITH ADRENALINE 1 IN 200,000

REACTIONS (15)
  - Eye movement disorder [None]
  - Intraocular pressure increased [None]
  - Ocular hyperaemia [None]
  - Eye pain [None]
  - Pupillary reflex impaired [Not Recovered/Not Resolved]
  - Orbital oedema [Unknown]
  - Sluggishness [None]
  - Optic atrophy [Unknown]
  - Anaesthetic complication [Unknown]
  - Eye swelling [None]
  - Mydriasis [None]
  - Drug hypersensitivity [None]
  - Eyelid oedema [None]
  - Exophthalmos [Recovered/Resolved]
  - Periorbital swelling [None]
